FAERS Safety Report 26217112 (Version 1)
Quarter: 2025Q4

REPORT INFORMATION
  Report Type: Spontaneous
  Country: US (occurrence: US)
  Receive Date: 20251231
  Receipt Date: 20251231
  Transmission Date: 20260119
  Serious: No
  Sender: TAKEDA
  Company Number: US-TAKEDA-2025TUS118964

PATIENT
  Age: 21 Year
  Sex: Female
  Weight: 58 kg

DRUGS (2)
  1. ENTYVIO [Suspect]
     Active Substance: VEDOLIZUMAB
     Indication: Product used for unknown indication
     Dosage: UNK
  2. ENTYVIO [Suspect]
     Active Substance: VEDOLIZUMAB

REACTIONS (3)
  - Injection site discharge [Unknown]
  - Injection site pain [Unknown]
  - Injection site pain [Unknown]
